FAERS Safety Report 10841768 (Version 1)
Quarter: 2015Q1

REPORT INFORMATION
  Report Type: Report from Study
  Country: US (occurrence: US)
  Receive Date: 20150220
  Receipt Date: 20150220
  Transmission Date: 20150721
  Serious: No
  Sender: FDA-Public Use
  Company Number: US-ABBVIE-14P-163-1265473-00

PATIENT
  Age: 36 Year
  Sex: Female

DRUGS (4)
  1. UCERIS [Concomitant]
     Active Substance: BUDESONIDE
     Indication: CROHN^S DISEASE
  2. HUMIRA [Suspect]
     Active Substance: ADALIMUMAB
     Indication: CROHN^S DISEASE
     Dates: start: 20140318
  3. WELLBUTRIN [Concomitant]
     Active Substance: BUPROPION HYDROCHLORIDE
     Indication: DEPRESSION
  4. ABILIFY [Concomitant]
     Active Substance: ARIPIPRAZOLE
     Indication: DEPRESSION

REACTIONS (8)
  - Injection site pain [Not Recovered/Not Resolved]
  - Injection site extravasation [Unknown]
  - Erythema [Not Recovered/Not Resolved]
  - Infection [Not Recovered/Not Resolved]
  - Local swelling [Not Recovered/Not Resolved]
  - Glaucoma [Unknown]
  - Injection site haemorrhage [Unknown]
  - Acne [Not Recovered/Not Resolved]

NARRATIVE: CASE EVENT DATE: 2014
